FAERS Safety Report 8614498-6 (Version None)
Quarter: 2012Q3

REPORT INFORMATION
  Report Type: 
  Country: None (occurrence: None)
  Receive Date: 20120823
  Receipt Date: 20120814
  Transmission Date: 20120928
  Serious: Yes (Other)
  Sender: FDA-Public Use
  Company Number: US-BAYER-2012-085570

PATIENT
  Age: 52 Year
  Sex: Female
  Weight: 63 kg

DRUGS (19)
  1. TRASYLOL [Suspect]
     Indication: CORONARY ARTERY BYPASS
     Dosage: 1 ML, UNK
     Dates: start: 20050707, end: 20050707
  2. PROTAMINE SULFATE [Concomitant]
     Dosage: 250 MG, UNK
     Route: 042
  3. ANCEF [Concomitant]
     Dosage: 2 G, UNK
     Route: 042
     Dates: start: 20080707
  4. HEPARIN [Concomitant]
     Dosage: 48000 U, UNK
     Dates: start: 20080707
  5. TRASYLOL [Suspect]
     Dosage: 50 ML/HR INFUSION
     Dates: start: 20050707, end: 20050707
  6. ASPIRIN [Concomitant]
     Dosage: 325 MG, QOD
     Route: 048
  7. ZOCOR [Concomitant]
     Dosage: 20 MG, UNK
     Route: 048
  8. SEVOFLURANE [Concomitant]
     Dosage: UNK
     Dates: start: 20080707
  9. CATAPRES [Concomitant]
     Dosage: 0.3 MG, TID
     Route: 048
  10. AZOL [Concomitant]
     Dosage: 12.5 MG, QOD
     Route: 048
  11. VERSED [Concomitant]
     Dosage: 6 MG, UNK
     Route: 042
     Dates: start: 20080707
  12. EPINEPHRINE [Concomitant]
     Dosage: UNK
     Route: 042
     Dates: start: 20080707
  13. LOPRESSOR [Concomitant]
     Dosage: 25 MG, BID
     Route: 048
  14. INSULIN [Concomitant]
     Dosage: UNK
     Route: 042
     Dates: start: 20080707
  15. FENTANYL [Concomitant]
     Dosage: 3750 MCG
     Route: 042
     Dates: start: 20080707
  16. TRASYLOL [Suspect]
     Dosage: 200 ML LOADING DOSE
     Dates: start: 20050707, end: 20050707
  17. ETOMIDATE [Concomitant]
     Dosage: UNK
     Route: 042
     Dates: start: 20080707
  18. DOPAMINE HCL [Concomitant]
     Dosage: UNK
     Route: 042
     Dates: start: 20080707
  19. PRIMACOR [Concomitant]
     Dosage: 31 ML, UNK
     Route: 048
     Dates: start: 20080707

REACTIONS (1)
  - RENAL FAILURE [None]
